FAERS Safety Report 6377305-0 (Version None)
Quarter: 2009Q3

REPORT INFORMATION
  Report Type: 
  Country: None (occurrence: None)
  Receive Date: 20090925
  Receipt Date: 20090917
  Transmission Date: 20100115
  Serious: Yes (Hospitalization)
  Sender: FDA-Public Use
  Company Number: PT-WATSON-2009-07640

PATIENT
  Age: 40 Year
  Sex: Male

DRUGS (6)
  1. TESTOSTERONE ENANTHATE [Suspect]
     Indication: DRUG ABUSE
     Dosage: UNK
  2. NANDROLONE DECANOATE (WATSON LABORATORIES) [Suspect]
     Indication: DRUG ABUSE
     Dosage: UNK
  3. METHANDROSTENOLONE [Suspect]
     Indication: DRUG ABUSE
     Dosage: UNK
  4. STANOZOLOL [Suspect]
     Indication: DRUG ABUSE
     Dosage: UNK
  5. OXYMETHOLONE [Suspect]
     Indication: DRUG ABUSE
     Dosage: UNK
     Route: 048
  6. TRENBOLONE [Suspect]
     Indication: DRUG ABUSE
     Dosage: UNK
     Route: 030

REACTIONS (2)
  - ACUTE HEPATIC FAILURE [None]
  - CARDIAC FAILURE CONGESTIVE [None]
